FAERS Safety Report 5478152-4 (Version None)
Quarter: 2007Q4

REPORT INFORMATION
  Report Type: 
  Country: None (occurrence: None)
  Receive Date: 20071005
  Receipt Date: 20070112
  Transmission Date: 20080405
  Serious: No
  Sender: FDA-Public Use
  Company Number: US-BRISTOL-MYERS SQUIBB COMPANY-13640933

PATIENT
  Age: 73 Year
  Sex: Female
  Weight: 61 kg

DRUGS (4)
  1. AVAPRO [Suspect]
     Indication: HYPERTENSION
  2. FORTEO [Concomitant]
  3. PREVACID [Concomitant]
  4. ASPIRIN [Concomitant]

REACTIONS (2)
  - ANOREXIA [None]
  - DYSGEUSIA [None]
